FAERS Safety Report 6894922-X (Version None)
Quarter: 2010Q3

REPORT INFORMATION
  Report Type: 
  Country: None (occurrence: None)
  Receive Date: 20100802
  Receipt Date: 20100723
  Transmission Date: 20110219
  Serious: Yes (Hospitalization)
  Sender: FDA-Public Use
  Company Number: CO-ROCHE-717021

PATIENT
  Sex: Male

DRUGS (4)
  1. CELLCEPT [Suspect]
     Dosage: FREQUENCY: QD, FORM:NOT REPORTED
     Route: 048
     Dates: start: 20070302
  2. AMLODIPINE [Concomitant]
     Dosage: FREQUENCY: QD
     Route: 048
  3. OMEPRAZOLE [Concomitant]
     Dosage: FREQUENCY: QD
     Route: 048
  4. CYCLOSPORINE [Concomitant]
     Dosage: FREQUENCY: QD
     Route: 048

REACTIONS (1)
  - TRANSPLANT REJECTION [None]
